FAERS Safety Report 6491324-5 (Version None)
Quarter: 2009Q4

REPORT INFORMATION
  Report Type: 
  Country: None (occurrence: None)
  Receive Date: 20091211
  Receipt Date: 20091201
  Transmission Date: 20100525
  Serious: Yes (Other)
  Sender: FDA-Public Use
  Company Number: US-PFIZER INC-2009305699

PATIENT
  Sex: Female
  Weight: 52.154 kg

DRUGS (2)
  1. CHANTIX [Suspect]
     Indication: SMOKING CESSATION THERAPY
     Dosage: 1 MG, 2X/DAY
     Route: 048
     Dates: start: 20091112, end: 20091201
  2. LOMOTIL [Concomitant]
     Indication: DIARRHOEA
     Route: 048

REACTIONS (4)
  - BLOOD POTASSIUM DECREASED [None]
  - CONJUNCTIVITIS [None]
  - EYE HAEMORRHAGE [None]
  - VISUAL IMPAIRMENT [None]
